FAERS Safety Report 4273822-8 (Version None)
Quarter: 2004Q1

REPORT INFORMATION
  Report Type: 
  Country: None (occurrence: None)
  Receive Date: 20040120
  Receipt Date: 20021023
  Transmission Date: 20041129
  Serious: Yes (Life-Threatening, Hospitalization, Other)
  Sender: FDA-Public Use
  Company Number: PHBS2002JP12908

PATIENT
  Age: 53 Year
  Sex: Male
  Weight: 76 kg

DRUGS (6)
  1. GLEEVEC [Suspect]
     Indication: GASTROINTESTINAL STROMAL TUMOUR
     Dosage: 300 MG, QD
     Route: 048
     Dates: start: 20011211, end: 20020115
  2. GASMOTIN [Concomitant]
     Dates: start: 20010904
  3. MAGNESIUM OXIDE [Concomitant]
     Dates: start: 20010904
  4. LENDORMIN [Concomitant]
     Dates: start: 20010904
  5. LUDIOMIL [Concomitant]
     Dates: start: 20010920
  6. TORSEMIDE [Concomitant]
     Dates: start: 20011126

REACTIONS (8)
  - DERMATITIS [None]
  - HAEMOGLOBIN DECREASED [None]
  - HEPATIC ENCEPHALOPATHY [None]
  - INTRA-ABDOMINAL HAEMORRHAGE [None]
  - LIP EROSION [None]
  - PRURITUS [None]
  - PYREXIA [None]
  - RASH [None]
